FAERS Safety Report 15492882 (Version 1)
Quarter: 2018Q4

REPORT INFORMATION
  Report Type: Spontaneous
  Country: US (occurrence: US)
  Receive Date: 20181004
  Receipt Date: 20181004
  Transmission Date: 20190205
  Serious: No
  Sender: FDA-Public Use
  Company Number: None

PATIENT
  Age: 60 Year
  Sex: Female

DRUGS (1)
  1. MINOCYCLINE [Suspect]
     Active Substance: MINOCYCLINE\MINOCYCLINE HYDROCHLORIDE
     Indication: ACNE
     Route: 048
     Dates: start: 20140101, end: 20180301

REACTIONS (4)
  - Metal poisoning [None]
  - Drug ineffective [None]
  - Tooth discolouration [None]
  - Ear canal injury [None]

NARRATIVE: CASE EVENT DATE: 20180305
